FAERS Safety Report 4307434-4 (Version None)
Quarter: 2004Q1

REPORT INFORMATION
  Report Type: 
  Country: None (occurrence: None)
  Receive Date: 20040226
  Receipt Date: 20040213
  Transmission Date: 20041129
  Serious: Yes (Hospitalization)
  Sender: FDA-Public Use
  Company Number: 2004010526

PATIENT
  Age: 72 Year
  Sex: Male

DRUGS (10)
  1. AMLODIPINE [Suspect]
     Indication: ILL-DEFINED DISORDER
     Dates: end: 20031003
  2. DILTIAZEM HYDROCHLORIDE [Suspect]
     Indication: HYPERTENSION
     Dosage: 100 MG DAILY, ORAL
     Route: 048
     Dates: start: 20031009
  3. FUROSEMIDE [Concomitant]
  4. DIPYRIDAMOLE [Concomitant]
  5. DENOPAMINE (DENOPAMINE) [Concomitant]
  6. PRAVASTATIN SODIUM [Concomitant]
  7. THEOPHYLLINE [Concomitant]
  8. FAMOTIDINE [Concomitant]
  9. GLYBURIDE [Concomitant]
  10. TICLOPIDINE HCL [Concomitant]

REACTIONS (1)
  - TOXIC SKIN ERUPTION [None]
